FAERS Safety Report 24557165 (Version 1)
Quarter: 2024Q4

REPORT INFORMATION
  Report Type: Spontaneous
  Country: MX (occurrence: MX)
  Receive Date: 20241028
  Receipt Date: 20241028
  Transmission Date: 20250115
  Serious: Yes (Other)
  Sender: BAYER HEALTHCARE PHARMACEUTICALS INC.
  Company Number: MX-BAYER-2024A153587

PATIENT
  Age: 39 Year
  Sex: Male

DRUGS (2)
  1. FINERENONE [Suspect]
     Active Substance: FINERENONE
     Dosage: 10 MG
     Dates: start: 20240125
  2. FINERENONE [Suspect]
     Active Substance: FINERENONE
     Indication: Albuminuria
     Dosage: 20 MG, QD
     Dates: end: 20241011

REACTIONS (4)
  - Diabetes insipidus [Recovering/Resolving]
  - Thirst [Recovering/Resolving]
  - Discomfort [Recovering/Resolving]
  - Off label use [Recovered/Resolved]

NARRATIVE: CASE EVENT DATE: 20240101
